APPROVED DRUG PRODUCT: DEMECLOCYCLINE HYDROCHLORIDE
Active Ingredient: DEMECLOCYCLINE HYDROCHLORIDE
Strength: 300MG
Dosage Form/Route: TABLET;ORAL
Application: A065171 | Product #002
Applicant: BARR LABORATORIES INC
Approved: Dec 13, 2004 | RLD: No | RS: No | Type: DISCN